FAERS Safety Report 4926790-7 (Version None)
Quarter: 2006Q1

REPORT INFORMATION
  Report Type: 
  Country: None (occurrence: None)
  Receive Date: 20060228
  Receipt Date: 20050615
  Transmission Date: 20060701
  Serious: No
  Sender: FDA-Public Use
  Company Number: US-GLAXOSMITHKLINE-A0562803A

PATIENT
  Sex: Female

DRUGS (4)
  1. LAMICTAL [Suspect]
     Indication: NEUROPATHY PERIPHERAL
     Dosage: 50MG TWICE PER DAY
     Route: 048
     Dates: end: 20050610
  2. DIAVAN [Concomitant]
     Route: 065
  3. AVAPRO [Concomitant]
  4. XANAX [Concomitant]

REACTIONS (1)
  - DIZZINESS [None]
